FAERS Safety Report 13514579 (Version 1)
Quarter: 2017Q2

REPORT INFORMATION
  Report Type: Report from Study
  Country: NZ (occurrence: NZ)
  Receive Date: 20170504
  Receipt Date: 20170504
  Transmission Date: 20170830
  Serious: Yes (Hospitalization)
  Sender: FDA-Public Use
  Company Number: PHHO2011NZ025061

PATIENT
  Age: 12 Year
  Sex: Female
  Weight: 41 kg

DRUGS (7)
  1. NELARABINE [Suspect]
     Active Substance: NELARABINE
     Indication: T-CELL TYPE ACUTE LEUKAEMIA
     Dosage: 650 MG/M2, CYCLIC
     Route: 042
     Dates: start: 20110218, end: 20110513
  2. MERCAPTOPURINE. [Suspect]
     Active Substance: MERCAPTOPURINE
     Indication: T-CELL TYPE ACUTE LEUKAEMIA
     Dosage: 60 MG/M2, CYC
     Route: 048
     Dates: start: 20110218, end: 20110526
  3. CYTARABINE. [Suspect]
     Active Substance: CYTARABINE
     Indication: T-CELL TYPE ACUTE LEUKAEMIA
     Dosage: 75 MG/M2, CYCLIC (DAYS 8-11, 15-18, 50-53 AND 57-60)
     Route: 042
     Dates: start: 20110218, end: 20110526
  4. PEGASPARGASE [Suspect]
     Active Substance: PEGASPARGASE
     Indication: T-CELL TYPE ACUTE LEUKAEMIA
     Dosage: 2500 IU/M2, DAYS 22 AND 64
     Route: 030
     Dates: start: 20110218, end: 20110530
  5. METHOTREXATE. [Suspect]
     Active Substance: METHOTREXATE
     Indication: T-CELL TYPE ACUTE LEUKAEMIA
     Dosage: 8-15 MG (AGE BASED DOSING)
     Route: 037
     Dates: start: 20110218, end: 20110530
  6. CYCLOPHOSPHAMIDE. [Suspect]
     Active Substance: CYCLOPHOSPHAMIDE
     Indication: T-CELL TYPE ACUTE LEUKAEMIA
     Dosage: 100 MG/M2, CYCLIC (DAYS 8 AND 50)
     Route: 042
     Dates: start: 20110218, end: 20110517
  7. VINCRISTINE SULPHATE [Suspect]
     Active Substance: VINCRISTINE SULFATE
     Indication: T-CELL TYPE ACUTE LEUKAEMIA
     Dosage: 1.5 MG/M2, (DAYS 22, 29, 64 AND71)
     Route: 042
     Dates: start: 20110218, end: 20110607

REACTIONS (3)
  - Weight decreased [Recovering/Resolving]
  - Decreased appetite [Recovered/Resolved]
  - Hepatic steatosis [Recovering/Resolving]

NARRATIVE: CASE EVENT DATE: 20110224
